FAERS Safety Report 7968956-8 (Version None)
Quarter: 2011Q4

REPORT INFORMATION
  Report Type: 
  Country: None (occurrence: None)
  Receive Date: 20111209
  Receipt Date: 20110906
  Transmission Date: 20120403
  Serious: No
  Sender: FDA-Public Use
  Company Number: US-BAYER-2011-090140

PATIENT
  Age: 20 Year
  Sex: Male
  Weight: 132 kg

DRUGS (2)
  1. IBUPROFEN [Concomitant]
     Indication: PRODUCT USED FOR UNKNOWN INDICATION
  2. BAYER EXTRA STRENGTH BACK + BODY PAIN [Suspect]
     Indication: PRODUCT USED FOR UNKNOWN INDICATION
     Dosage: 4 DF, UNK
     Route: 048
     Dates: start: 20110906

REACTIONS (5)
  - NO ADVERSE EVENT [None]
  - ABDOMINAL PAIN UPPER [None]
  - NAUSEA [None]
  - HYPERCHLORHYDRIA [None]
  - DIZZINESS [None]
